FAERS Safety Report 7545091-4 (Version None)
Quarter: 2011Q2

REPORT INFORMATION
  Report Type: 
  Country: None (occurrence: None)
  Receive Date: 20110606
  Receipt Date: 20110520
  Transmission Date: 20111010
  Serious: Yes (Hospitalization, Other)
  Sender: FDA-Public Use
  Company Number: AUR-APL-2011-01278

PATIENT
  Age: 65 Year
  Sex: Male

DRUGS (4)
  1. CARVEDILOL [Suspect]
     Indication: HYPERTENSION
  2. BLINDED THERAPY (SAXAGLIPTIN/PLACEBO) [Suspect]
     Indication: TYPE 2 DIABETES MELLITUS
     Dates: start: 20100915, end: 20110408
  3. SPIRONOLACTONE AND HYDROCHLOROTHIAZIDE [Suspect]
     Indication: HYPERTENSION
  4. METFORMIN HCL [Concomitant]

REACTIONS (2)
  - HYPERKALAEMIA [None]
  - RENAL FAILURE ACUTE [None]
